FAERS Safety Report 8150893-X (Version None)
Quarter: 2012Q1

REPORT INFORMATION
  Report Type: 
  Country: None (occurrence: None)
  Receive Date: 20120220
  Receipt Date: 20120213
  Transmission Date: 20120608
  Serious: Yes (Hospitalization, Other)
  Sender: FDA-Public Use
  Company Number: PHEH2012US001069

PATIENT
  Sex: Male

DRUGS (24)
  1. LOVAZA [Concomitant]
  2. METOLAZONE [Concomitant]
  3. PARADEX [Concomitant]
  4. TOBI [Suspect]
     Indication: PSEUDOMONAS INFECTION
     Dosage: 300 MG, BID 28 DAYS AND OFF 28 DAYS
     Dates: end: 20111229
  5. CELEXA [Concomitant]
  6. MUCINEX [Concomitant]
  7. POTASSIUM CHLORIDE [Concomitant]
  8. ALBUTEROL [Concomitant]
     Dosage: UNK
  9. CALCIUM [Concomitant]
  10. COREG [Concomitant]
  11. NITROGLYCERIN [Concomitant]
  12. PRILOSEC [Concomitant]
  13. SPIRONOLACTONE [Concomitant]
  14. FLONASE [Concomitant]
  15. PULMICORT-100 [Concomitant]
  16. TRAZODONE HYDROCHLORIDE [Concomitant]
  17. DIOVAN [Concomitant]
     Dosage: UNK
  18. LIPITOR [Concomitant]
     Dosage: UNK
  19. PREDNISONE [Concomitant]
  20. SPIRIVA [Concomitant]
  21. GLIPIZIDE [Concomitant]
  22. REGLAN [Concomitant]
  23. LASIX [Concomitant]
     Dosage: UNK
  24. METFORMIN HCL [Concomitant]

REACTIONS (14)
  - INFECTION [None]
  - SPUTUM DISCOLOURED [None]
  - ABDOMINAL DISTENSION [None]
  - RHONCHI [None]
  - HYPOXIA [None]
  - DYSPNOEA [None]
  - DEAFNESS UNILATERAL [None]
  - OEDEMA PERIPHERAL [None]
  - OXYGEN SATURATION DECREASED [None]
  - ACUTE RESPIRATORY FAILURE [None]
  - PULMONARY CONGESTION [None]
  - PSEUDOMONAS INFECTION [None]
  - TACHYPNOEA [None]
  - COUGH [None]
